FAERS Safety Report 7876256-X (Version None)
Quarter: 2011Q4

REPORT INFORMATION
  Report Type: 
  Country: None (occurrence: None)
  Receive Date: 20111031
  Receipt Date: 20111025
  Transmission Date: 20120403
  Serious: Yes (Hospitalization, Other)
  Sender: FDA-Public Use
  Company Number: US-BRISTOL-MYERS SQUIBB COMPANY-14278311

PATIENT
  Age: 68 Year
  Sex: Female
  Weight: 53 kg

DRUGS (2)
  1. CISPLATIN [Suspect]
     Indication: HEAD AND NECK CANCER
     Dosage: START DATE OF 1ST COURSE: 01JUL08; LAST ADMINISTERED DATE: 08JUL08.
     Dates: start: 20080708, end: 20080708
  2. ERBITUX [Suspect]
     Indication: HEAD AND NECK CANCER
     Dosage: THERAPY DATES: 01JUL08;08JUL08
     Dates: start: 20080715, end: 20080715

REACTIONS (3)
  - VOMITING [None]
  - STOMATITIS [None]
  - BLOOD CREATININE INCREASED [None]
